FAERS Safety Report 16451105 (Version 1)
Quarter: 2019Q2

REPORT INFORMATION
  Report Type: Spontaneous
  Country: US (occurrence: US)
  Receive Date: 20190619
  Receipt Date: 20190619
  Transmission Date: 20190711
  Serious: No
  Sender: FDA-Public Use
  Company Number: US-PFIZER INC-2019259037

PATIENT

DRUGS (2)
  1. TIKOSYN [Suspect]
     Active Substance: DOFETILIDE
     Dosage: UNK (0.125 (UNITS NOT PROBED)
  2. TIKOSYN [Suspect]
     Active Substance: DOFETILIDE
     Dosage: 250 UG, UNK

REACTIONS (1)
  - Blood test abnormal [Unknown]
